FAERS Safety Report 16363870 (Version 10)
Quarter: 2019Q2

REPORT INFORMATION
  Report Type: Report from Study
  Country: CO (occurrence: CO)
  Receive Date: 20190528
  Receipt Date: 20190620
  Transmission Date: 20190711
  Serious: Yes (Life-Threatening, Hospitalization, Other)
  Sender: FDA-Public Use
  Company Number: PHHY2019CO097647

PATIENT
  Age: 12 Year
  Sex: Male
  Weight: 36 kg

DRUGS (6)
  1. REVOLADE [Suspect]
     Active Substance: ELTROMBOPAG
     Indication: IMMUNE THROMBOCYTOPENIC PURPURA
     Dosage: 50 MG, QD
     Route: 048
  2. REVOLADE [Suspect]
     Active Substance: ELTROMBOPAG
     Dosage: 100 MG, QD
     Route: 048
     Dates: start: 20190326
  3. REVOLADE [Suspect]
     Active Substance: ELTROMBOPAG
     Dosage: 75 MG, QD
     Route: 048
     Dates: end: 20190414
  4. MAGNESIUM [Concomitant]
     Active Substance: MAGNESIUM
     Indication: PRODUCT USED FOR UNKNOWN INDICATION
     Dosage: 400 MG, UNK
     Route: 048
  5. CICLOSPORIN [Suspect]
     Active Substance: CYCLOSPORINE
     Indication: IMMUNE THROMBOCYTOPENIC PURPURA
     Dosage: 1.5 MG, Q12H
     Route: 048
  6. JADENU [Suspect]
     Active Substance: DEFERASIROX
     Indication: APLASTIC ANAEMIA
     Dosage: 720 MG, QD
     Route: 048
     Dates: start: 20190610

REACTIONS (18)
  - Immune thrombocytopenic purpura [Unknown]
  - Gingival bleeding [Unknown]
  - Haemoglobin decreased [Unknown]
  - Neutropenia [Unknown]
  - Bone marrow failure [Unknown]
  - Blood iron increased [Unknown]
  - Pyrexia [Unknown]
  - Febrile neutropenia [Unknown]
  - Platelet count decreased [Unknown]
  - Haematoma [Unknown]
  - Epistaxis [Unknown]
  - Intestinal haemorrhage [Unknown]
  - Disease recurrence [Unknown]
  - Immunodeficiency [Unknown]
  - Incorrect dose administered [Unknown]
  - Respiratory tract infection fungal [Unknown]
  - Serum ferritin increased [Unknown]
  - Product use in unapproved indication [Unknown]

NARRATIVE: CASE EVENT DATE: 20190522
